FAERS Safety Report 20548426 (Version 1)
Quarter: 2022Q1

REPORT INFORMATION
  Report Type: Spontaneous
  Country: US (occurrence: US)
  Receive Date: 20220303
  Receipt Date: 20220303
  Transmission Date: 20220423
  Serious: No
  Sender: FDA-Public Use
  Company Number: US-ALLERGAN-2108400US

PATIENT
  Age: 85 Year
  Sex: Female

DRUGS (1)
  1. RESTASIS [Suspect]
     Active Substance: CYCLOSPORINE
     Indication: Dry eye
     Dosage: 2 GTT, Q12H
     Route: 047
     Dates: start: 20210212, end: 20210223

REACTIONS (4)
  - Eye pruritus [Recovering/Resolving]
  - Lacrimation increased [Recovering/Resolving]
  - Eye irritation [Unknown]
  - Drug ineffective [Unknown]

NARRATIVE: CASE EVENT DATE: 20210212
